FAERS Safety Report 20718920 (Version 1)
Quarter: 2022Q2

REPORT INFORMATION
  Report Type: Spontaneous
  Country: GB (occurrence: None)
  Receive Date: 20220418
  Receipt Date: 20220418
  Transmission Date: 20220721
  Serious: Yes (Other)
  Sender: FDA-Public Use
  Company Number: GB-ROCHE-3053277

PATIENT
  Age: 16 Year
  Sex: Male
  Weight: 80.9 kg

DRUGS (1)
  1. EMICIZUMAB [Suspect]
     Active Substance: EMICIZUMAB
     Indication: Factor VIII deficiency
     Route: 058
     Dates: start: 201910, end: 202106

REACTIONS (1)
  - Drug specific antibody present [Not Recovered/Not Resolved]

NARRATIVE: CASE EVENT DATE: 20210301
